FAERS Safety Report 11169387 (Version 1)
Quarter: 2015Q2

REPORT INFORMATION
  Report Type: Spontaneous
  Country: US (occurrence: US)
  Receive Date: 20150605
  Receipt Date: 20150605
  Transmission Date: 20150821
  Serious: No
  Sender: FDA-Public Use
  Company Number: US-GLAXOSMITHKLINE-US2015076003

PATIENT
  Sex: Female

DRUGS (1)
  1. ALLI [Suspect]
     Active Substance: ORLISTAT
     Indication: WEIGHT LOSS DIET
     Dosage: UNK, TWO WEEKS

REACTIONS (4)
  - Gastrointestinal disorder [Recovered/Resolved]
  - Treatment noncompliance [Unknown]
  - Product quality issue [Unknown]
  - Drug ineffective [Unknown]
